FAERS Safety Report 16078364 (Version 2)
Quarter: 2019Q1

REPORT INFORMATION
  Report Type: Report from Study
  Country: CO (occurrence: CO)
  Receive Date: 20190315
  Receipt Date: 20190329
  Transmission Date: 20190418
  Serious: Yes (Hospitalization)
  Sender: FDA-Public Use
  Company Number: PHHY2019CO057485

PATIENT
  Age: 55 Year
  Sex: Female
  Weight: 74 kg

DRUGS (1)
  1. COSENTYX [Suspect]
     Active Substance: SECUKINUMAB
     Indication: PSORIASIS
     Dosage: 300 MG, QMO
     Route: 058
     Dates: start: 20180129

REACTIONS (4)
  - Pulmonary fibrosis [Unknown]
  - Cough [Unknown]
  - Fatigue [Recovering/Resolving]
  - Pulmonary calcification [Unknown]

NARRATIVE: CASE EVENT DATE: 20190222
